FAERS Safety Report 12474756 (Version 3)
Quarter: 2016Q3

REPORT INFORMATION
  Report Type: Report from Study
  Country: CZ (occurrence: CZ)
  Receive Date: 20160617
  Receipt Date: 20160812
  Transmission Date: 20161109
  Serious: Yes (Death, Life-Threatening, Hospitalization, Other)
  Sender: FDA-Public Use
  Company Number: CZ-BRISTOL-MYERS SQUIBB COMPANY-BMS-2016-046317

PATIENT
  Age: 78 Year
  Sex: Female

DRUGS (7)
  1. DETRALEX [Concomitant]
     Active Substance: DIOSMIN\HESPERIDIN
     Indication: PRODUCT USED FOR UNKNOWN INDICATION
     Dosage: 2 TAB, BID
     Route: 065
  2. LOSEPRAZOL [Concomitant]
     Active Substance: OMEPRAZOLE
     Indication: PRODUCT USED FOR UNKNOWN INDICATION
     Dosage: 20 MG, QD
     Route: 065
  3. CALCIUM [Concomitant]
     Active Substance: CALCIUM
     Indication: PRODUCT USED FOR UNKNOWN INDICATION
     Dosage: 500 MG, BID
     Route: 065
  4. NIVOLUMAB [Suspect]
     Active Substance: NIVOLUMAB
     Indication: HODGKIN^S DISEASE
     Dosage: UNK
     Route: 065
     Dates: start: 20160512
  5. CITALOPRAM [Concomitant]
     Active Substance: CITALOPRAM HYDROBROMIDE
     Indication: PRODUCT USED FOR UNKNOWN INDICATION
     Dosage: 20 MG, QD
     Route: 065
  6. FORTECORTIN                        /00016001/ [Concomitant]
     Active Substance: DEXAMETHASONE
     Indication: PRODUCT USED FOR UNKNOWN INDICATION
     Dosage: 4 MG, QD
     Route: 065
  7. ALGIFEN                            /00372304/ [Concomitant]
     Indication: ABDOMINAL PAIN
     Dosage: 20 GTT, TID
     Route: 065

REACTIONS (26)
  - Multiple organ dysfunction syndrome [Unknown]
  - C-reactive protein increased [Unknown]
  - Confusional state [Not Recovered/Not Resolved]
  - Pulmonary fibrosis [Unknown]
  - Neutropenia [Recovered/Resolved]
  - Respiratory failure [Unknown]
  - Pneumonia [Unknown]
  - Alanine aminotransferase increased [Unknown]
  - Bacterial disease carrier [Unknown]
  - Cardiac failure acute [Fatal]
  - Cardiomyopathy [Fatal]
  - Electrolyte imbalance [Unknown]
  - Hepatic steatosis [Unknown]
  - Hodgkin^s disease [Unknown]
  - Diarrhoea [Recovered/Resolved]
  - Gamma-glutamyltransferase increased [Unknown]
  - Thrombocytopenia [Unknown]
  - Condition aggravated [Unknown]
  - Restlessness [Unknown]
  - Cholestasis [Unknown]
  - Anaemia [Unknown]
  - Blood alkaline phosphatase increased [Unknown]
  - Coma [Not Recovered/Not Resolved]
  - Abdominal pain [Recovered/Resolved]
  - Asthenia [Unknown]
  - Mucosal inflammation [Unknown]

NARRATIVE: CASE EVENT DATE: 20160608
